FAERS Safety Report 25730578 (Version 1)
Quarter: 2025Q3

REPORT INFORMATION
  Report Type: Spontaneous
  Country: EU (occurrence: EU)
  Receive Date: 20250827
  Receipt Date: 20250827
  Transmission Date: 20251021
  Serious: Yes (Hospitalization)
  Sender: MYLAN
  Company Number: None

PATIENT
  Age: 67 Year
  Sex: Male

DRUGS (20)
  1. ACETAMINOPHEN [Suspect]
     Active Substance: ACETAMINOPHEN
     Indication: Pain
     Dosage: 1 GRAM, QID (1G 4/D)
     Dates: start: 20250722, end: 20250801
  2. ACETAMINOPHEN [Suspect]
     Active Substance: ACETAMINOPHEN
     Dosage: 1 GRAM, QID (1G 4/D)
     Route: 048
     Dates: start: 20250722, end: 20250801
  3. ACETAMINOPHEN [Suspect]
     Active Substance: ACETAMINOPHEN
     Dosage: 1 GRAM, QID (1G 4/D)
     Route: 048
     Dates: start: 20250722, end: 20250801
  4. ACETAMINOPHEN [Suspect]
     Active Substance: ACETAMINOPHEN
     Dosage: 1 GRAM, QID (1G 4/D)
     Dates: start: 20250722, end: 20250801
  5. ENOXAPARIN SODIUM [Suspect]
     Active Substance: ENOXAPARIN SODIUM
     Indication: Pulmonary embolism
     Dosage: 4000 INTERNATIONAL UNIT, QD
     Dates: start: 20250721, end: 20250725
  6. ENOXAPARIN SODIUM [Suspect]
     Active Substance: ENOXAPARIN SODIUM
     Dosage: 4000 INTERNATIONAL UNIT, QD
     Dates: start: 20250721, end: 20250725
  7. ENOXAPARIN SODIUM [Suspect]
     Active Substance: ENOXAPARIN SODIUM
     Dosage: 4000 INTERNATIONAL UNIT, QD
     Route: 058
     Dates: start: 20250721, end: 20250725
  8. ENOXAPARIN SODIUM [Suspect]
     Active Substance: ENOXAPARIN SODIUM
     Dosage: 4000 INTERNATIONAL UNIT, QD
     Route: 058
     Dates: start: 20250721, end: 20250725
  9. ENOXAPARIN SODIUM [Suspect]
     Active Substance: ENOXAPARIN SODIUM
     Dosage: 8000 INTERNATIONAL UNIT, QD
     Dates: start: 20250726, end: 20250801
  10. ENOXAPARIN SODIUM [Suspect]
     Active Substance: ENOXAPARIN SODIUM
     Dosage: 8000 INTERNATIONAL UNIT, QD
     Dates: start: 20250726, end: 20250801
  11. ENOXAPARIN SODIUM [Suspect]
     Active Substance: ENOXAPARIN SODIUM
     Dosage: 8000 INTERNATIONAL UNIT, QD
     Route: 058
     Dates: start: 20250726, end: 20250801
  12. ENOXAPARIN SODIUM [Suspect]
     Active Substance: ENOXAPARIN SODIUM
     Dosage: 8000 INTERNATIONAL UNIT, QD
     Route: 058
     Dates: start: 20250726, end: 20250801
  13. NEFOPAM HYDROCHLORIDE [Concomitant]
     Active Substance: NEFOPAM HYDROCHLORIDE
     Indication: Pain
     Dosage: 120 MILLIGRAM, QD
     Dates: start: 20250724, end: 20250728
  14. NEFOPAM HYDROCHLORIDE [Concomitant]
     Active Substance: NEFOPAM HYDROCHLORIDE
     Dosage: 120 MILLIGRAM, QD
     Route: 042
     Dates: start: 20250724, end: 20250728
  15. NEFOPAM HYDROCHLORIDE [Concomitant]
     Active Substance: NEFOPAM HYDROCHLORIDE
     Dosage: 120 MILLIGRAM, QD
     Route: 042
     Dates: start: 20250724, end: 20250728
  16. NEFOPAM HYDROCHLORIDE [Concomitant]
     Active Substance: NEFOPAM HYDROCHLORIDE
     Dosage: 120 MILLIGRAM, QD
     Dates: start: 20250724, end: 20250728
  17. KETAMINE [Concomitant]
     Active Substance: KETAMINE
     Indication: Pain
     Dosage: 120 MILLIGRAM, QD
     Dates: start: 20250720, end: 20250721
  18. KETAMINE [Concomitant]
     Active Substance: KETAMINE
     Dosage: 120 MILLIGRAM, QD
     Route: 042
     Dates: start: 20250720, end: 20250721
  19. KETAMINE [Concomitant]
     Active Substance: KETAMINE
     Dosage: 120 MILLIGRAM, QD
     Route: 042
     Dates: start: 20250720, end: 20250721
  20. KETAMINE [Concomitant]
     Active Substance: KETAMINE
     Dosage: 120 MILLIGRAM, QD
     Dates: start: 20250720, end: 20250721

REACTIONS (2)
  - Mixed liver injury [Recovering/Resolving]
  - Rash maculo-papular [Recovering/Resolving]

NARRATIVE: CASE EVENT DATE: 20250727
